FAERS Safety Report 9441216 (Version 1)
Quarter: 2013Q3

REPORT INFORMATION
  Report Type: Spontaneous
  Country: IT (occurrence: None)
  Receive Date: 20130801
  Receipt Date: 20130801
  Transmission Date: 20140515
  Serious: Yes (Other)
  Sender: FDA-Public Use
  Company Number: AUR-APL-2013-05423

PATIENT
  Age: 59 Year
  Sex: Female

DRUGS (7)
  1. LAMOTRIGINE (LAMOTRIGINE) [Suspect]
     Indication: PRODUCT USED FOR UNKNOWN INDICATION
     Dosage: 1 D
     Route: 048
     Dates: start: 20060101, end: 20130607
  2. DELTACORTENE (PREDNISONE) [Concomitant]
  3. ANAFRIL (CLOMIPRAMINE HYDROCHLORIDE) [Concomitant]
  4. KESTINE (EBASTINE) [Concomitant]
  5. XAMIOL (XAMIOL) [Concomitant]
  6. AMLODIPINE (AMLODIPINE) [Concomitant]
  7. ENALAPRIL [Concomitant]

REACTIONS (3)
  - Eosinophilia [None]
  - Erythema [None]
  - Rash [None]
